FAERS Safety Report 9942700 (Version 2)
Quarter: 2014Q1

REPORT INFORMATION
  Report Type: Report from Study
  Country: JP (occurrence: JP)
  Receive Date: 20140303
  Receipt Date: 20140303
  Transmission Date: 20141002
  Serious: Yes (Death)
  Sender: FDA-Public Use
  Company Number: JP-TAKEDA-TCI2013A04312

PATIENT
  Age: 95 Year
  Sex: Female

DRUGS (9)
  1. LANSOPRAZOLE [Suspect]
     Indication: PROPHYLAXIS AGAINST GASTROINTESTINAL ULCER
     Dosage: 15 MG, QD
     Route: 065
     Dates: start: 20120220, end: 20130629
  2. BAYASPIRIN [Concomitant]
     Indication: THROMBOSIS PROPHYLAXIS
     Dosage: 100 MG, 1 DAYS
     Route: 065
     Dates: end: 20130629
  3. AMLODIN [Concomitant]
     Dosage: 5 MG, 1 DAYS
     Route: 065
     Dates: end: 20130629
  4. RACOL NF [Concomitant]
     Dosage: 1000 ML, 1 DAYS
     Route: 065
     Dates: end: 20130629
  5. SELENICA-R [Concomitant]
     Dosage: 0.5 G, 1 DAYS
     Route: 065
     Dates: end: 20130629
  6. SODIUM CHLORIDE [Concomitant]
     Dosage: 2 G, 1 DAYS
     Route: 065
     Dates: end: 20130629
  7. LAC B [Concomitant]
     Indication: DYSPEPSIA
     Dosage: 1 G,1 DAYS
     Route: 065
     Dates: end: 20130629
  8. LAC B [Concomitant]
     Indication: DYSPEPSIA
  9. GASMOTIN [Concomitant]
     Indication: DYSPEPSIA
     Dosage: 10 MG,1 DAYS
     Route: 065
     Dates: end: 20130629

REACTIONS (1)
  - Aortic aneurysm rupture [Fatal]
